FAERS Safety Report 21487493 (Version 2)
Quarter: 2022Q4

REPORT INFORMATION
  Report Type: Report from Study
  Country: CO (occurrence: CO)
  Receive Date: 20221020
  Receipt Date: 20221129
  Transmission Date: 20230113
  Serious: Yes (Other)
  Sender: FDA-Public Use
  Company Number: CO-BAYER-2022A142213

PATIENT
  Age: 93 Year
  Sex: Male

DRUGS (11)
  1. NUBEQA [Suspect]
     Active Substance: DAROLUTAMIDE
     Indication: Hormone-refractory prostate cancer
     Dosage: 300 MG, BID
     Dates: start: 20220404
  2. DEGARELIX [Concomitant]
     Active Substance: DEGARELIX
     Dosage: 120 MG
     Dates: start: 20220908, end: 20220908
  3. DEGARELIX [Concomitant]
     Active Substance: DEGARELIX
     Dosage: 80 MG
     Dates: start: 20220929, end: 20220929
  4. LEVOTHYROXINE [Concomitant]
     Active Substance: LEVOTHYROXINE
  5. DIOVAN [Concomitant]
     Active Substance: VALSARTAN
  6. BISOPROLOL FUMARATE [Concomitant]
     Active Substance: BISOPROLOL FUMARATE
  7. FUROSEMIDE [Concomitant]
     Active Substance: FUROSEMIDE
  8. TAMSULOSIN [Concomitant]
     Active Substance: TAMSULOSIN
  9. CALCIUM CARBONATE [Concomitant]
     Active Substance: CALCIUM CARBONATE
  10. ASPIRIN [Concomitant]
     Active Substance: ASPIRIN
  11. ATORVASTATIN [Concomitant]
     Active Substance: ATORVASTATIN

REACTIONS (4)
  - Conjunctival haemorrhage [Recovering/Resolving]
  - Hypertension [Recovered/Resolved]
  - Inflammation [Recovering/Resolving]
  - Off label use [None]

NARRATIVE: CASE EVENT DATE: 20220404
